FAERS Safety Report 4626294-5 (Version None)
Quarter: 2005Q2

REPORT INFORMATION
  Report Type: 
  Country: None (occurrence: None)
  Receive Date: 20050331
  Receipt Date: 20040225
  Transmission Date: 20051028
  Serious: Yes (Other)
  Sender: FDA-Public Use
  Company Number: 200410962BCC

PATIENT
  Age: 34 Year
  Sex: Male
  Weight: 81.6475 kg

DRUGS (2)
  1. ALEVE (CAPLET) [Suspect]
     Indication: BACK PAIN
     Dosage: IRR, ORAL
     Route: 048
     Dates: start: 20040208, end: 20040222
  2. ANALGESIC [Concomitant]

REACTIONS (2)
  - DYSPNOEA [None]
  - WHEEZING [None]
